FAERS Safety Report 8805980 (Version 1)
Quarter: 2012Q4

REPORT INFORMATION
  Report Type: Spontaneous
  Country: NO (occurrence: None)
  Receive Date: 20120918
  Receipt Date: 20120918
  Transmission Date: 20130627
  Serious: Yes (Other)
  Sender: FDA-Public Use
  Company Number: FK201202613

PATIENT
  Sex: Female

DRUGS (4)
  1. METHYLPREDNISOLONE [Suspect]
     Indication: PRODUCT USED FOR UNKNOWN INDICATION
     Dosage: (NOT OTHERWISE SPECIFIED)
     Route: 042
  2. METHYLPREDNISOLONE [Suspect]
     Indication: PRODUCT USED FOR UNKNOWN INDICATION
     Dosage: x3 in gradually reduce doses, (NOT OTHERWISE SPECIFIED)
     Route: 042
  3. CYCLOPHOSPHANICE (-CYCLOPHOSPHAMIDE) [Concomitant]
  4. RITUXIMAB (RITUXIMAB) [Concomitant]

REACTIONS (6)
  - Neuropathy peripheral [None]
  - Myopathy [None]
  - Haemodynamic instability [None]
  - Respiratory disorder [None]
  - Leukopenia [None]
  - Unresponsive to stimuli [None]
